FAERS Safety Report 15131150 (Version 1)
Quarter: 2018Q3

REPORT INFORMATION
  Report Type: Spontaneous
  Country: US (occurrence: US)
  Receive Date: 20180711
  Receipt Date: 20180711
  Transmission Date: 20181010
  Serious: No
  Sender: FDA-Public Use
  Company Number: US-NEOS THERAPEUTICS, LP-2018NEO00070

PATIENT
  Age: 8 Year
  Sex: Male

DRUGS (1)
  1. COTEMPLA XR?ODT [Suspect]
     Active Substance: METHYLPHENIDATE
     Dosage: 34.6 MG, 1X/DAY IN THE MORNING
     Dates: start: 201805

REACTIONS (4)
  - Agitation [Not Recovered/Not Resolved]
  - Energy increased [Not Recovered/Not Resolved]
  - Heart rate increased [Not Recovered/Not Resolved]
  - Impulsive behaviour [Not Recovered/Not Resolved]

NARRATIVE: CASE EVENT DATE: 201805
